FAERS Safety Report 20608918 (Version 1)
Quarter: 2022Q1

REPORT INFORMATION
  Report Type: Spontaneous
  Country: AT (occurrence: AT)
  Receive Date: 20220317
  Receipt Date: 20220317
  Transmission Date: 20220423
  Serious: Yes (Other)
  Sender: FDA-Public Use
  Company Number: AT-BAUSCH-BL-2022-006899

PATIENT
  Sex: Male

DRUGS (1)
  1. WELLBUTRIN XL [Suspect]
     Active Substance: BUPROPION HYDROCHLORIDE
     Indication: Product used for unknown indication
     Route: 065
     Dates: end: 202202

REACTIONS (5)
  - Dysentery [Unknown]
  - Diarrhoea [Unknown]
  - Sleep disorder [Unknown]
  - Hyperhidrosis [Unknown]
  - Insomnia [Unknown]
